FAERS Safety Report 8918871 (Version 1)
Quarter: 2012Q4

REPORT INFORMATION
  Report Type: Spontaneous
  Country: US (occurrence: None)
  Receive Date: 20121115
  Receipt Date: 20121115
  Transmission Date: 20130627
  Serious: Yes (Death, Other)
  Sender: FDA-Public Use
  Company Number: None

PATIENT
  Age: 64 Year
  Sex: Female

DRUGS (2)
  1. CLOPIDOGREL BISULFATE [Suspect]
     Dates: start: 20120821
  2. ACIPHEX [Concomitant]

REACTIONS (4)
  - Constipation [None]
  - Alopecia [None]
  - Abdominal pain upper [None]
  - Transient ischaemic attack [None]
